FAERS Safety Report 7559678-6 (Version None)
Quarter: 2011Q2

REPORT INFORMATION
  Report Type: 
  Country: None (occurrence: None)
  Receive Date: 20110617
  Receipt Date: 20110617
  Transmission Date: 20111010
  Serious: Yes (Hospitalization)
  Sender: FDA-Public Use
  Company Number: None

PATIENT
  Sex: Female
  Weight: 55 kg

DRUGS (1)
  1. IMITREX [Suspect]

REACTIONS (3)
  - MYOCARDIAL INFARCTION [None]
  - ARTERIOSPASM CORONARY [None]
  - CORONARY ARTERY DISSECTION [None]
